FAERS Safety Report 4485815-6 (Version None)
Quarter: 2004Q4

REPORT INFORMATION
  Report Type: 
  Country: None (occurrence: None)
  Receive Date: 20041022
  Receipt Date: 20041013
  Transmission Date: 20050328
  Serious: Yes (Death)
  Sender: FDA-Public Use
  Company Number: 163-20785-04080118

PATIENT
  Age: 83 Year
  Sex: Female

DRUGS (1)
  1. THALOMID [Suspect]
     Indication: MULTIPLE MYELOMA
     Dosage: 200 MG, DAILY, ORAL
     Route: 048
     Dates: start: 20040701, end: 20040701

REACTIONS (2)
  - MENTAL DISORDER DUE TO A GENERAL MEDICAL CONDITION [None]
  - MENTAL STATUS CHANGES [None]
